FAERS Safety Report 24198563 (Version 2)
Quarter: 2024Q3

REPORT INFORMATION
  Report Type: Spontaneous
  Country: US (occurrence: US)
  Receive Date: 20240812
  Receipt Date: 20240916
  Transmission Date: 20241016
  Serious: No
  Sender: NOVUGEN PHARMA MALAYSIA
  Company Number: US-Novugen Pharma Sdn. Bhd.-2160288

PATIENT

DRUGS (3)
  1. MIDODRINE HYDROCHLORIDE [Suspect]
     Active Substance: MIDODRINE HYDROCHLORIDE
     Indication: Product used for unknown indication
  2. FAMOTIDINE [Concomitant]
     Active Substance: FAMOTIDINE
  3. FLUOXETINE [Concomitant]
     Active Substance: FLUOXETINE HYDROCHLORIDE

REACTIONS (5)
  - Presyncope [Recovered/Resolved]
  - Product quality issue [Unknown]
  - Vomiting [Recovered/Resolved]
  - Heart rate increased [Recovered/Resolved]
  - Hypotension [Recovered/Resolved]
